FAERS Safety Report 20150687 (Version 2)
Quarter: 2021Q4

REPORT INFORMATION
  Report Type: Other
  Country: US (occurrence: None)
  Receive Date: 20211206
  Receipt Date: 20211216
  Transmission Date: 20220303
  Serious: Yes (Other)
  Sender: FDA-Public Use
  Company Number: US-ROCHE-2965518

PATIENT
  Sex: Female
  Weight: 52.210 kg

DRUGS (1)
  1. OCREVUS [Suspect]
     Active Substance: OCRELIZUMAB
     Indication: Relapsing-remitting multiple sclerosis
     Dosage: 2 WEEKS APART THEN 600 MG EVERY 6 MONTHS
     Route: 042

REACTIONS (6)
  - Multiple sclerosis [Not Recovered/Not Resolved]
  - Breast disorder [Unknown]
  - Dental caries [Not Recovered/Not Resolved]
  - Alopecia [Not Recovered/Not Resolved]
  - Influenza [Recovered/Resolved]
  - Personality change [Not Recovered/Not Resolved]

NARRATIVE: CASE EVENT DATE: 20200101
